FAERS Safety Report 23521804 (Version 4)
Quarter: 2024Q3

REPORT INFORMATION
  Report Type: Spontaneous
  Country: AR (occurrence: AR)
  Receive Date: 20240214
  Receipt Date: 20240719
  Transmission Date: 20241016
  Serious: Yes (Hospitalization, Other)
  Sender: MYLAN
  Company Number: AR-MYLANLABS-2023M1121968

PATIENT
  Age: 59 Year
  Sex: Female

DRUGS (3)
  1. CLOZAPINE [Suspect]
     Active Substance: CLOZAPINE
     Indication: Product used for unknown indication
     Dosage: 5 DOSAGE FORM, QD (PER DAY)
     Route: 065
     Dates: start: 19950509
  2. Logical [Concomitant]
     Dosage: 4 DOSAGE FORM, QD (PER DAY)
     Route: 065
  3. CLONAZEPAM [Concomitant]
     Active Substance: CLONAZEPAM
     Dosage: 1 DOSAGE FORM, QD (PER DAY)
     Route: 065

REACTIONS (12)
  - Psychiatric decompensation [Unknown]
  - Neutropenia [Not Recovered/Not Resolved]
  - Leukocytosis [Recovered/Resolved]
  - Lymphocyte count increased [Not Recovered/Not Resolved]
  - Red blood cell count decreased [Recovering/Resolving]
  - Haematocrit decreased [Recovered/Resolved]
  - Haemoglobin decreased [Recovering/Resolving]
  - Mean cell volume decreased [Recovered/Resolved]
  - Mean cell haemoglobin decreased [Recovered/Resolved]
  - Eosinophil count decreased [Unknown]
  - Mental disorder [Unknown]
  - Treatment noncompliance [Unknown]

NARRATIVE: CASE EVENT DATE: 20231107
